FAERS Safety Report 9030110 (Version 3)
Quarter: 2013Q3

REPORT INFORMATION
  Report Type: Spontaneous
  Country: US (occurrence: US)
  Receive Date: 20130125
  Receipt Date: 20130807
  Transmission Date: 20140515
  Serious: No
  Sender: FDA-Public Use
  Company Number: US-BIOGENIDEC-2013BI005297

PATIENT
  Sex: Female

DRUGS (1)
  1. AVONEX [Suspect]
     Indication: MULTIPLE SCLEROSIS
     Route: 030
     Dates: start: 19961224

REACTIONS (3)
  - Visual impairment [Not Recovered/Not Resolved]
  - Reading disorder [Not Recovered/Not Resolved]
  - Mental impairment [Not Recovered/Not Resolved]
